FAERS Safety Report 8875550 (Version 1)
Quarter: 2012Q4

REPORT INFORMATION
  Report Type: 
  Country: TR (occurrence: TR)
  Receive Date: 20121030
  Receipt Date: 20121030
  Transmission Date: 20130627
  Serious: Yes (Other)
  Sender: FDA-Public Use
  Company Number: TR-ABBOTT-12P-161-1001813-00

PATIENT
  Age: 1 Month
  Sex: Male

DRUGS (4)
  1. CALCITRIOL [Suspect]
     Indication: PRODUCT USED FOR UNKNOWN INDICATION
     Dosage: 40 ng/kg/day
  2. CALCITRIOL [Suspect]
     Dosage: titrated up to 400 ng/kg/day
  3. CALCIUM [Suspect]
     Indication: PRODUCT USED FOR UNKNOWN INDICATION
     Dosage: titrated to 400 mg/kg/day
  4. CALCIUM [Suspect]

REACTIONS (3)
  - Hypocalcaemia [Recovered/Resolved]
  - Drug ineffective [Recovered/Resolved]
  - Rash [Unknown]
